FAERS Safety Report 5925595-8 (Version None)
Quarter: 2008Q4

REPORT INFORMATION
  Report Type: 
  Country: None (occurrence: None)
  Receive Date: 20081021
  Receipt Date: 20081016
  Transmission Date: 20090506
  Serious: Yes (Death, Hospitalization)
  Sender: FDA-Public Use
  Company Number: A0752178A

PATIENT
  Age: 82 Year
  Sex: Female

DRUGS (2)
  1. CARVEDILOL [Suspect]
     Dosage: 25MG TWICE PER DAY
     Dates: start: 20060101, end: 20080901
  2. CHEMOTHERAPY [Concomitant]

REACTIONS (3)
  - CHOKING [None]
  - DEATH [None]
  - DYSPHAGIA [None]
